FAERS Safety Report 9273523 (Version 1)
Quarter: 2013Q2

REPORT INFORMATION
  Report Type: Spontaneous
  Country: US (occurrence: US)
  Receive Date: 20130506
  Receipt Date: 20130506
  Transmission Date: 20140414
  Serious: No
  Sender: FDA-Public Use
  Company Number: US-AMGEN-USASP2013024347

PATIENT
  Age: 66 Year
  Sex: Female
  Weight: 56.69 kg

DRUGS (7)
  1. ENBREL [Suspect]
     Indication: RHEUMATOID ARTHRITIS
     Dosage: 50 MG, QWK
     Dates: start: 201204
  2. ASPIRIN [Concomitant]
     Dosage: 81 MG, QD
     Route: 048
  3. AMLODIPINE [Concomitant]
     Dosage: 5 MG, QD
     Route: 048
  4. ATENOLOL [Concomitant]
     Dosage: 50 MG, QD
     Route: 048
  5. FOLIC ACID [Concomitant]
     Dosage: 1 MG, QD
     Route: 048
  6. LEVOTHYROXINE [Concomitant]
     Dosage: 75 MG, UNK
     Route: 048
  7. HUMALOG [Concomitant]
     Dosage: 100 U/ML
     Route: 058

REACTIONS (1)
  - Pain in extremity [Not Recovered/Not Resolved]
